FAERS Safety Report 21237546 (Version 1)
Quarter: 2022Q3

REPORT INFORMATION
  Report Type: Spontaneous
  Country: US (occurrence: US)
  Receive Date: 20220822
  Receipt Date: 20220822
  Transmission Date: 20221027
  Serious: Yes (Other)
  Sender: FDA-Public Use
  Company Number: US-LUPIN PHARMACEUTICALS INC.-2022-10376

PATIENT
  Age: 3 Decade
  Sex: Male

DRUGS (25)
  1. QUETIAPINE FUMARATE [Suspect]
     Active Substance: QUETIAPINE FUMARATE
     Indication: Psychotic symptom
     Dosage: 800 MG, TITRATED DOSE; INITIAL DOSE NOT STATED
     Route: 065
     Dates: start: 201906, end: 201908
  2. QUETIAPINE FUMARATE [Suspect]
     Active Substance: QUETIAPINE FUMARATE
     Indication: Schizophrenia
  3. OLANZAPINE [Suspect]
     Active Substance: OLANZAPINE
     Indication: Psychotic symptom
     Dosage: 2.5 MG, ORALLY DISINTEGRATING TABLET
     Route: 048
     Dates: start: 2019, end: 2019
  4. OLANZAPINE [Suspect]
     Active Substance: OLANZAPINE
     Indication: Schizophrenia
     Dosage: 5 MG, NIGHTLY; ORALLY DISINTEGRATING TABLET
     Route: 048
     Dates: start: 2019, end: 2019
  5. OLANZAPINE [Suspect]
     Active Substance: OLANZAPINE
     Dosage: 7.5 MG, NIGHTLY; ORALLY DISINTEGRATING TABLET
     Route: 048
     Dates: start: 2019, end: 2019
  6. OLANZAPINE [Suspect]
     Active Substance: OLANZAPINE
     Dosage: 10 MG, NIGHTLY; ORALLY DISINTEGRATING TABLET
     Route: 048
     Dates: start: 2019, end: 2019
  7. OLANZAPINE [Suspect]
     Active Substance: OLANZAPINE
     Dosage: 15 MG, NIGHTLY; ORALLY DISINTEGRATING TABLET
     Route: 048
     Dates: start: 2019, end: 2019
  8. OLANZAPINE [Suspect]
     Active Substance: OLANZAPINE
     Dosage: 20 MG, NIGHTLY; ORALLY DISINTEGRATING TABLET
     Route: 048
     Dates: start: 2019
  9. RISPERIDONE [Concomitant]
     Active Substance: RISPERIDONE
     Indication: Aggression
     Dosage: 0.5 MG
     Route: 065
     Dates: start: 2019, end: 2019
  10. RISPERIDONE [Concomitant]
     Active Substance: RISPERIDONE
     Indication: Psychotic symptom
     Dosage: 4 MG
     Route: 065
     Dates: start: 2019
  11. RISPERIDONE [Concomitant]
     Active Substance: RISPERIDONE
     Indication: Schizophrenia
  12. CLOZAPINE [Concomitant]
     Active Substance: CLOZAPINE
     Indication: Psychotic symptom
     Dosage: 25 MG
     Route: 065
     Dates: start: 2019, end: 2019
  13. CLOZAPINE [Concomitant]
     Active Substance: CLOZAPINE
     Indication: Schizophrenia
     Dosage: 50 MG
     Route: 065
     Dates: start: 2019, end: 2019
  14. CLOZAPINE [Concomitant]
     Active Substance: CLOZAPINE
     Dosage: 75 MG
     Route: 065
     Dates: start: 2019, end: 2019
  15. CLOZAPINE [Concomitant]
     Active Substance: CLOZAPINE
     Dosage: 100 MG
     Route: 065
     Dates: start: 2019, end: 2019
  16. CLOZAPINE [Concomitant]
     Active Substance: CLOZAPINE
     Dosage: 150 MG
     Route: 065
     Dates: start: 2019
  17. LORAZEPAM [Concomitant]
     Active Substance: LORAZEPAM
     Indication: Catatonia
     Dosage: 1 MG, TID, TITRATED DOSE; INITIAL DOSE NOT STATED
     Route: 065
     Dates: start: 2019
  18. LORAZEPAM [Concomitant]
     Active Substance: LORAZEPAM
     Dosage: 2 MG, TID
     Route: 065
     Dates: start: 2019
  19. LORAZEPAM [Concomitant]
     Active Substance: LORAZEPAM
     Dosage: 3 MG, TID
     Route: 065
     Dates: start: 2019
  20. LORAZEPAM [Concomitant]
     Active Substance: LORAZEPAM
     Dosage: 5 MG, TID
     Route: 065
     Dates: start: 2019
  21. LORAZEPAM [Concomitant]
     Active Substance: LORAZEPAM
     Dosage: 6 MG, TID
     Route: 065
     Dates: start: 2019
  22. LORAZEPAM [Concomitant]
     Active Substance: LORAZEPAM
     Dosage: 7 MG, TID
     Route: 065
     Dates: start: 2019
  23. LORAZEPAM [Concomitant]
     Active Substance: LORAZEPAM
     Dosage: 8 MG, TID
     Route: 065
     Dates: start: 2019
  24. ESCITALOPRAM [Concomitant]
     Active Substance: ESCITALOPRAM OXALATE
     Indication: Major depression
     Dosage: 10 MG
     Route: 065
     Dates: start: 2019
  25. LEVOTHYROXINE [Concomitant]
     Active Substance: LEVOTHYROXINE
     Indication: Hypothyroidism
     Dosage: UNK
     Route: 065

REACTIONS (1)
  - Drug ineffective [Unknown]

NARRATIVE: CASE EVENT DATE: 20190101
